FAERS Safety Report 6844454-X (Version None)
Quarter: 2010Q3

REPORT INFORMATION
  Report Type: 
  Country: None (occurrence: None)
  Receive Date: 20100713
  Receipt Date: 20100628
  Transmission Date: 20110219
  Serious: Yes (Death, Disabling)
  Sender: FDA-Public Use
  Company Number: OSCN-PR-1006S-0175

PATIENT
  Sex: Male

DRUGS (1)
  1. OMNISCAN [Suspect]
     Indication: PRODUCT USED FOR UNKNOWN INDICATION
     Dosage: NR

REACTIONS (1)
  - NEPHROGENIC SYSTEMIC FIBROSIS [None]
